FAERS Safety Report 9749179 (Version 2)
Quarter: 2014Q1

REPORT INFORMATION
  Report Type: Spontaneous
  Country: US (occurrence: US)
  Receive Date: 20131212
  Receipt Date: 20140312
  Transmission Date: 20141002
  Serious: No
  Sender: FDA-Public Use
  Company Number: US-INCYTE CORPORATION-2013IN002515

PATIENT
  Age: 76 Year
  Sex: Female

DRUGS (9)
  1. JAKAFI [Suspect]
     Indication: MYELOFIBROSIS
     Dosage: 20 MG, BID
     Route: 048
     Dates: start: 2013, end: 2013
  2. JAKAFI [Suspect]
     Dosage: 10 MG, BID
     Route: 048
     Dates: start: 2013
  3. SIMVASTATIN [Concomitant]
  4. SYNTHROID [Concomitant]
  5. VITAMIN D [Concomitant]
  6. LISINOPRIL [Concomitant]
  7. IRON [Concomitant]
  8. ASPIRIN [Concomitant]
  9. METOPROLOL [Concomitant]

REACTIONS (3)
  - Nausea [Unknown]
  - Platelet count decreased [Unknown]
  - Transfusion [Unknown]
